FAERS Safety Report 7240094-1 (Version None)
Quarter: 2011Q1

REPORT INFORMATION
  Report Type: 
  Country: None (occurrence: None)
  Receive Date: 20110124
  Receipt Date: 20110120
  Transmission Date: 20110831
  Serious: Yes (Hospitalization)
  Sender: FDA-Public Use
  Company Number: US-TEVA-264044USA

PATIENT
  Age: 55 Year
  Sex: Female

DRUGS (2)
  1. INTERFERON BETA NOS [Suspect]
     Indication: MULTIPLE SCLEROSIS
     Dosage: WEEKLY
     Route: 030
     Dates: start: 20070101, end: 20090101
  2. COPAXONE [Suspect]
     Indication: MULTIPLE SCLEROSIS
     Route: 058
     Dates: start: 20070101, end: 20090101

REACTIONS (1)
  - DEPRESSION [None]
